FAERS Safety Report 9251637 (Version 1)
Quarter: 2013Q1

REPORT INFORMATION
  Report Type: Spontaneous
  Country: US (occurrence: None)
  Receive Date: 20130305
  Receipt Date: 20130305
  Transmission Date: 20140127
  Serious: Yes (Other)
  Sender: FDA-Public Use
  Company Number: 163-21880-12090122

PATIENT
  Age: 56 Year
  Sex: Male

DRUGS (3)
  1. REVLIMID [Suspect]
     Indication: PLASMA CELL MYELOMA
     Dosage: 08/14/2012 - UNKNOWN, CAPSULE, 25 MG, 21 IN 21 D, PO
  2. DEXAMETHASONE (DEXAMETHASONE) [Concomitant]
  3. ZOMETA (ZOLEDRONIC ACID) [Concomitant]

REACTIONS (3)
  - Dry mouth [None]
  - Fatigue [None]
  - Diarrhoea [None]
